FAERS Safety Report 8391801-6 (Version None)
Quarter: 2012Q2

REPORT INFORMATION
  Report Type: 
  Country: None (occurrence: None)
  Receive Date: 20120525
  Receipt Date: 20120525
  Transmission Date: 20120825
  Serious: Yes (Other)
  Sender: FDA-Public Use
  Company Number: None

PATIENT
  Sex: Female

DRUGS (2)
  1. BUPROPION HYDROCHLORIDE [Suspect]
     Indication: DEPRESSION
     Dosage: 150 MG 1-EVERY AM BY MOUTH AM
     Route: 048
     Dates: start: 20120328, end: 20120331
  2. LEVOTHYROXINE SODIUM [Suspect]

REACTIONS (17)
  - HEADACHE [None]
  - TINNITUS [None]
  - CONTUSION [None]
  - PAIN [None]
  - DIZZINESS [None]
  - ANGER [None]
  - INSOMNIA [None]
  - SKIN ULCER [None]
  - MUSCULAR WEAKNESS [None]
  - BACK PAIN [None]
  - JOINT SWELLING [None]
  - GINGIVAL SWELLING [None]
  - CONSTIPATION [None]
  - DRUG INEFFECTIVE [None]
  - STOMATITIS [None]
  - FEELING HOT [None]
  - PALPITATIONS [None]
